FAERS Safety Report 4540852-8 (Version None)
Quarter: 2004Q4

REPORT INFORMATION
  Report Type: 
  Country: None (occurrence: None)
  Receive Date: 20041229
  Receipt Date: 20041217
  Transmission Date: 20050328
  Serious: Yes (Other)
  Sender: FDA-Public Use
  Company Number: US-BRISTOL-MYERS SQUIBB COMPANY-12799375

PATIENT
  Age: 60 Year
  Sex: Female
  Weight: 79 kg

DRUGS (7)
  1. GLUCOVANCE [Suspect]
     Indication: DIABETES MELLITUS
     Route: 048
     Dates: start: 20000101
  2. METFORMIN HCL [Suspect]
     Dates: end: 20030101
  3. ACTOSE [Concomitant]
  4. LIPITOR [Concomitant]
  5. DIOVAN [Concomitant]
  6. CALCIUM [Concomitant]
  7. ZYRTEC [Concomitant]

REACTIONS (2)
  - COLON CANCER [None]
  - DIARRHOEA [None]
